FAERS Safety Report 14421166 (Version 1)
Quarter: 2018Q1

REPORT INFORMATION
  Report Type: Not Available
  Country: US (occurrence: US)
  Receive Date: 20180122
  Receipt Date: 20180122
  Transmission Date: 20180509
  Serious: No
  Sender: FDA-Public Use
  Company Number: US-NEUROCRINE BIOSCIENCES INC.-2018NBI00076

PATIENT
  Age: 59 Year
  Sex: Female

DRUGS (10)
  1. INGREZZA [Suspect]
     Active Substance: VALBENAZINE
     Indication: TARDIVE DYSKINESIA
     Route: 048
     Dates: start: 20171201
  2. RISPERDAL [Concomitant]
     Active Substance: RISPERIDONE
  3. NEXIUM [Concomitant]
     Active Substance: ESOMEPRAZOLE MAGNESIUM
  4. PROCARDIA [Concomitant]
     Active Substance: NIFEDIPINE
  5. DEPAKOTE [Concomitant]
     Active Substance: DIVALPROEX SODIUM
  6. LISINOPRIL. [Concomitant]
     Active Substance: LISINOPRIL
  7. TRAMADOL. [Concomitant]
     Active Substance: TRAMADOL
  8. ZANTAC [Concomitant]
     Active Substance: RANITIDINE HYDROCHLORIDE
  9. COGENTIN [Concomitant]
     Active Substance: BENZTROPINE MESYLATE
  10. SINGULAIR [Concomitant]
     Active Substance: MONTELUKAST SODIUM

REACTIONS (1)
  - Tardive dyskinesia [Unknown]

NARRATIVE: CASE EVENT DATE: 20171205
